FAERS Safety Report 6758816-2 (Version None)
Quarter: 2010Q2

REPORT INFORMATION
  Report Type: 
  Country: None (occurrence: None)
  Receive Date: 20100603
  Receipt Date: 20100521
  Transmission Date: 20101027
  Serious: Yes (Other)
  Sender: FDA-Public Use
  Company Number: 2010AL003157

PATIENT
  Age: 67 Year
  Sex: Female

DRUGS (2)
  1. GABAPENTIN [Suspect]
     Indication: NEURALGIA
     Dosage: PO
     Route: 048
     Dates: start: 20091001
  2. TARCEVA [Concomitant]

REACTIONS (6)
  - DIARRHOEA [None]
  - DRUG INTERACTION [None]
  - FOLLICULITIS [None]
  - MUCOSAL INFLAMMATION [None]
  - ONYCHALGIA [None]
  - RASH [None]
